FAERS Safety Report 9587920 (Version 9)
Quarter: 2014Q2

REPORT INFORMATION
  Report Type: Report from Study
  Country: PT (occurrence: PT)
  Receive Date: 20131003
  Receipt Date: 20140401
  Transmission Date: 20141212
  Serious: Yes (Hospitalization)
  Sender: FDA-Public Use
  Company Number: PT-B.I. PHARMACEUTICALS,INC./RIDGEFIELD-2013-BI-29954BI

PATIENT
  Age: 60 Year
  Sex: Male
  Weight: 55 kg

DRUGS (6)
  1. BIBW 2992 [Suspect]
     Indication: SQUAMOUS CELL CARCINOMA OF HEAD AND NECK
     Dosage: 40 MG
     Route: 048
     Dates: start: 20130827, end: 20130924
  2. BIBW 2992 [Suspect]
     Dosage: 30 MG
     Route: 048
     Dates: start: 20131014, end: 20131017
  3. BIBW 2992 [Suspect]
     Dosage: 20 MG
     Route: 048
     Dates: start: 20131101, end: 20131114
  4. NISTATIN [Concomitant]
     Indication: PROPHYLAXIS
     Dosage: DOSE PER APPLICATION: 1000,000 DAILY DOSE: QID
     Route: 048
     Dates: start: 20131115
  5. BROMAZEPAM [Concomitant]
     Indication: PROPHYLAXIS
     Dosage: 3 MG
     Route: 048
     Dates: start: 20131115
  6. ENOXAPARIN [Concomitant]
     Indication: DEEP VEIN THROMBOSIS
     Dosage: 40 MG
     Route: 058
     Dates: start: 20131115

REACTIONS (7)
  - Mucosal inflammation [Recovered/Resolved]
  - Cellulitis [Recovered/Resolved]
  - Urethritis [Recovered/Resolved]
  - Mucosal inflammation [Recovered/Resolved]
  - Oropharyngeal candidiasis [Recovered/Resolved]
  - Cellulitis of male external genital organ [Recovered/Resolved]
  - Balanoposthitis [Recovered/Resolved]
